FAERS Safety Report 4679801-0 (Version None)
Quarter: 2005Q2

REPORT INFORMATION
  Report Type: 
  Country: None (occurrence: None)
  Receive Date: 20050531
  Receipt Date: 20050519
  Transmission Date: 20051028
  Serious: Yes (Disabling)
  Sender: FDA-Public Use
  Company Number: B0381903A

PATIENT
  Age: 19 Year
  Sex: Male
  Weight: 54.8852 kg

DRUGS (26)
  1. ALKERAN [Suspect]
     Indication: BONE MARROW CONDITIONING REGIMEN
     Dosage: 100 MG/M2/ INTRAVENOUS
     Route: 042
     Dates: start: 20040314, end: 20040316
  2. FILGRASTIM [Concomitant]
  3. CYCLOSPORINE [Concomitant]
  4. METHOTREXATE [Concomitant]
  5. VITAMIN B1 +B12 [Concomitant]
  6. HEPARIN SODIUM [Concomitant]
  7. GRANISETRON  HCL [Concomitant]
  8. IMMUNE GLOBULIN INTRAVENOUS (HUMAN) [Concomitant]
  9. CEFOZOPRAN HYDROCHLORIDE [Concomitant]
  10. ACYCLOVIR [Concomitant]
  11. AMPICILLIN TRIHYDRATE [Concomitant]
  12. OMEPRAZOLE [Concomitant]
  13. BUPRENORPHINE HCL [Concomitant]
  14. HYDROCORTISONE H-SUCC. [Concomitant]
  15. PRIMAXIN [Concomitant]
  16. MEROPENEM [Concomitant]
  17. STRONG NEO MINOPHAGEN C [Concomitant]
  18. ADENOSINE [Concomitant]
  19. ACYCLOVIR [Concomitant]
  20. FLUCONAZOLE [Concomitant]
  21. CO-TRIMOXAZOLE [Concomitant]
  22. OMEPRAZOLE [Concomitant]
  23. CIPROFLOXACIN [Concomitant]
  24. ROXITHROMYCIN [Concomitant]
  25. PREDONINE [Concomitant]
  26. DEXCHLORPHENIRAM. MALEATE [Concomitant]

REACTIONS (4)
  - ALANINE AMINOTRANSFERASE INCREASED [None]
  - ASPARTATE AMINOTRANSFERASE INCREASED [None]
  - C-REACTIVE PROTEIN INCREASED [None]
  - TRANSPLANT REJECTION [None]
